FAERS Safety Report 7322536-6 (Version None)
Quarter: 2011Q1

REPORT INFORMATION
  Report Type: 
  Country: None (occurrence: None)
  Receive Date: 20110301
  Receipt Date: 20110216
  Transmission Date: 20110831
  Serious: Yes (Hospitalization, Other)
  Sender: FDA-Public Use
  Company Number: US-BAYER-2011-018355

PATIENT
  Sex: Female

DRUGS (9)
  1. VOLTAREN [Concomitant]
  2. DITROPAN XL [Concomitant]
     Dosage: 15 MG, UNK
  3. HYDROXYZINE [Concomitant]
     Indication: URTICARIA
     Dosage: 25 MG, UNK
  4. ALLEGRA [Concomitant]
     Dosage: 180 MG, UNK
  5. YAZ [Suspect]
     Dosage: UNK
     Route: 048
     Dates: end: 20050812
  6. YASMIN [Suspect]
     Dosage: UNK
     Route: 048
     Dates: end: 20050812
  7. IMITREX [Concomitant]
     Indication: MIGRAINE
  8. INDERAL [Concomitant]
  9. VICODIN [Concomitant]
     Indication: PAIN

REACTIONS (2)
  - VARICOSE VEIN [None]
  - PERIPHERAL ISCHAEMIA [None]
